FAERS Safety Report 17573518 (Version 1)
Quarter: 2020Q1

REPORT INFORMATION
  Report Type: Spontaneous
  Country: FR (occurrence: FR)
  Receive Date: 20200323
  Receipt Date: 20200323
  Transmission Date: 20200409
  Serious: Yes (Life-Threatening, Hospitalization, Other)
  Sender: FDA-Public Use
  Company Number: FR-PFM-2020-03303

PATIENT

DRUGS (1)
  1. NAVELBINE [Suspect]
     Active Substance: VINORELBINE TARTRATE
     Indication: DESMOID TUMOUR
     Dosage: 80 MG EVERY 15 DAYS
     Route: 048
     Dates: start: 201802, end: 201908

REACTIONS (4)
  - Off label use [Unknown]
  - Cardiac failure [Not Recovered/Not Resolved]
  - Product use in unapproved indication [Unknown]
  - Cardiogenic shock [Not Recovered/Not Resolved]

NARRATIVE: CASE EVENT DATE: 201908
